FAERS Safety Report 6938965-6 (Version None)
Quarter: 2010Q3

REPORT INFORMATION
  Report Type: 
  Country: None (occurrence: None)
  Receive Date: 20100824
  Receipt Date: 20100816
  Transmission Date: 20110219
  Serious: Yes (Death)
  Sender: FDA-Public Use
  Company Number: GXKR2010US09160

PATIENT
  Age: 43 Year
  Sex: Male

DRUGS (2)
  1. METHYLPREDNISOLONE 4MG TAB [Suspect]
     Indication: PSORIATIC ARTHROPATHY
     Route: 065
  2. ETANERCEPT [Suspect]
     Indication: PSORIATIC ARTHROPATHY
     Route: 065

REACTIONS (10)
  - CALCIPHYLAXIS [None]
  - DEBRIDEMENT [None]
  - EMOTIONAL DISTRESS [None]
  - ENTEROCOCCAL INFECTION [None]
  - ESCHAR [None]
  - PAIN [None]
  - PRURITUS [None]
  - SECRETION DISCHARGE [None]
  - SEPSIS [None]
  - SKIN LESION [None]
